FAERS Safety Report 13980753 (Version 1)
Quarter: 2017Q3

REPORT INFORMATION
  Report Type: Report from Study
  Country: US (occurrence: US)
  Receive Date: 20170918
  Receipt Date: 20170918
  Transmission Date: 20171128
  Serious: Yes (Death)
  Sender: FDA-Public Use
  Company Number: US-TAKEDA-2017TUS019098

PATIENT
  Sex: Female
  Weight: 45.35 kg

DRUGS (4)
  1. VORTIOXETINE [Suspect]
     Active Substance: VORTIOXETINE
     Dosage: 15 MG, QD
     Route: 048
  2. ARIPIPRAZOLE. [Concomitant]
     Active Substance: ARIPIPRAZOLE
     Indication: EUPHORIC MOOD
     Dosage: 0.5 MG, QD
     Route: 048
     Dates: start: 201611
  3. DEPLIN [Concomitant]
     Active Substance: LEVOMEFOLATE CALCIUM
     Indication: METABOLIC DISORDER
     Dosage: 7.5 MG, QD
     Route: 048
     Dates: start: 201611
  4. VORTIOXETINE [Suspect]
     Active Substance: VORTIOXETINE
     Indication: MAJOR DEPRESSION
     Dosage: 10 MG, QD
     Route: 048
     Dates: start: 201602

REACTIONS (1)
  - Dementia Alzheimer^s type [Fatal]
